FAERS Safety Report 23917005 (Version 1)
Quarter: 2024Q2

REPORT INFORMATION
  Report Type: Spontaneous
  Country: HR (occurrence: HR)
  Receive Date: 20240529
  Receipt Date: 20240529
  Transmission Date: 20240716
  Serious: Yes (Other)
  Sender: FDA-Public Use
  Company Number: HR-AstraZeneca-CH-00631949A

PATIENT
  Age: 1 Year
  Sex: Male
  Weight: 12.8 kg

DRUGS (2)
  1. ULTOMIRIS [Suspect]
     Active Substance: RAVULIZUMAB-CWVZ
     Indication: Atypical haemolytic uraemic syndrome
     Dosage: 600 MILLIGRAM, Q2W
     Route: 040
     Dates: start: 20240415, end: 20240415
  2. ULTOMIRIS [Suspect]
     Active Substance: RAVULIZUMAB-CWVZ
     Dosage: 600 MILLIGRAM
     Route: 040

REACTIONS (1)
  - Vaccination site vesicles [Not Recovered/Not Resolved]

NARRATIVE: CASE EVENT DATE: 20240416
